FAERS Safety Report 11874330 (Version 2)
Quarter: 2016Q3

REPORT INFORMATION
  Report Type: Spontaneous
  Country: CA (occurrence: CA)
  Receive Date: 20151229
  Receipt Date: 20160928
  Transmission Date: 20161109
  Serious: Yes (Other)
  Sender: FDA-Public Use
  Company Number: CA-APOTEX-2015AP015463

PATIENT
  Age: 15 Year
  Sex: Male

DRUGS (6)
  1. APO-RISPERIDONE [Suspect]
     Active Substance: RISPERIDONE
     Indication: MENTAL DISABILITY
  2. ZIPRASIDONE. [Suspect]
     Active Substance: ZIPRASIDONE
     Indication: MENTAL DISABILITY
  3. APO-OLANZAPINE [Suspect]
     Active Substance: OLANZAPINE
     Indication: SCHIZOPHRENIA
     Dosage: 10 MG/DAY
     Route: 065
  4. ZIPRASIDONE. [Suspect]
     Active Substance: ZIPRASIDONE
     Indication: SCHIZOPHRENIA
     Dosage: 40 MG/DAY
     Route: 065
  5. APO-OLANZAPINE [Suspect]
     Active Substance: OLANZAPINE
     Indication: MENTAL DISABILITY
  6. APO-RISPERIDONE [Suspect]
     Active Substance: RISPERIDONE
     Indication: SCHIZOPHRENIA
     Dosage: 3 MG/DAY
     Route: 065

REACTIONS (2)
  - Oculogyric crisis [Recovered/Resolved]
  - Disease recurrence [Recovered/Resolved]
